FAERS Safety Report 25304291 (Version 1)
Quarter: 2025Q2

REPORT INFORMATION
  Report Type: Spontaneous
  Country: AU (occurrence: AU)
  Receive Date: 20250513
  Receipt Date: 20250513
  Transmission Date: 20250717
  Serious: Yes (Other)
  Sender: ALEXION PHARMACEUTICALS
  Company Number: AU-AstraZeneca-CH-00865309A

PATIENT
  Age: 75 Year

DRUGS (1)
  1. OSIMERTINIB [Suspect]
     Active Substance: OSIMERTINIB
     Indication: EGFR gene mutation
     Dosage: 80 MILLIGRAM, QD

REACTIONS (4)
  - Metastases to meninges [Unknown]
  - Metastases to central nervous system [Unknown]
  - Mucosal inflammation [Recovered/Resolved]
  - Rash [Recovered/Resolved]
